FAERS Safety Report 14054845 (Version 1)
Quarter: 2017Q4

REPORT INFORMATION
  Report Type: Report from Study
  Country: US (occurrence: US)
  Receive Date: 20171006
  Receipt Date: 20171006
  Transmission Date: 20180321
  Serious: Yes (Hospitalization, Congenital Anomaly, Other)
  Sender: FDA-Public Use
  Company Number: US-ASTRAZENECA-2017SE93242

PATIENT
  Age: 16797 Day
  Sex: Female
  Weight: 113.4 kg

DRUGS (5)
  1. LYNPARZA [Suspect]
     Active Substance: OLAPARIB
     Indication: OVARIAN CANCER
     Route: 048
     Dates: start: 201708, end: 20170924
  2. ESTRADIOL-NORETHINDRONE ACETATE [Concomitant]
  3. AMLODIPINE BESYLATE. [Concomitant]
     Active Substance: AMLODIPINE BESYLATE
  4. LYNPARZA [Suspect]
     Active Substance: OLAPARIB
     Indication: OVARIAN CANCER
     Route: 048
  5. STOOL SOFTENER (DOCUSATE) [Concomitant]
     Active Substance: DOCUSATE

REACTIONS (9)
  - Blood creatinine increased [Unknown]
  - Pain [Unknown]
  - Drug dose omission [Unknown]
  - Nausea [Unknown]
  - Constipation [Unknown]
  - Abdominal discomfort [Unknown]
  - Jaundice [Unknown]
  - Glomerular filtration rate decreased [Unknown]
  - Vomiting [Unknown]

NARRATIVE: CASE EVENT DATE: 20170831
